FAERS Safety Report 7616828-0 (Version None)
Quarter: 2011Q3

REPORT INFORMATION
  Report Type: 
  Country: None (occurrence: None)
  Receive Date: 20110718
  Receipt Date: 20110706
  Transmission Date: 20111222
  Serious: No
  Sender: FDA-Public Use
  Company Number: US-BIOGENIDEC-2011BI012635

PATIENT
  Sex: Female

DRUGS (2)
  1. AVONEX [Concomitant]
     Indication: MULTIPLE SCLEROSIS
     Route: 030
  2. TYSABRI [Suspect]
     Indication: MULTIPLE SCLEROSIS
     Route: 042
     Dates: start: 20070618, end: 20110301

REACTIONS (9)
  - WHITE BLOOD CELL COUNT DECREASED [None]
  - HYPOAESTHESIA [None]
  - SCOLIOSIS [None]
  - SINUSITIS [None]
  - FALL [None]
  - MULTIPLE SCLEROSIS RELAPSE [None]
  - COUGH [None]
  - PARANASAL SINUS HYPERSECRETION [None]
  - FATIGUE [None]
